FAERS Safety Report 9341769 (Version 6)
Quarter: 2017Q3

REPORT INFORMATION
  Report Type: Report from Study
  Country: DE (occurrence: DE)
  Receive Date: 20130611
  Receipt Date: 20170811
  Transmission Date: 20171128
  Serious: Yes (Hospitalization, Other)
  Sender: FDA-Public Use
  Company Number: DE-ROCHE-1233373

PATIENT
  Age: 68 Year
  Sex: Male
  Weight: 69 kg

DRUGS (4)
  1. CISPLATIN. [Concomitant]
     Active Substance: CISPLATIN
  2. BEVACIZUMAB. [Suspect]
     Active Substance: BEVACIZUMAB
     Indication: LUNG ADENOCARCINOMA
  3. BEVACIZUMAB. [Suspect]
     Active Substance: BEVACIZUMAB
     Indication: LUNG ADENOCARCINOMA
     Dosage: ON 06/JUN/2013, THE PATIENT RECEIVED THE LAST DOSE OF BEVACIZUMAB PRIOR TO THE EVENT.
     Route: 042
     Dates: start: 20130515
  4. ALIMTA [Concomitant]
     Active Substance: PEMETREXED DISODIUM

REACTIONS (6)
  - C-reactive protein increased [Unknown]
  - Cerebrovascular accident [Not Recovered/Not Resolved]
  - Infection [Unknown]
  - Hemiparesis [Unknown]
  - Essential thrombocythaemia [Not Recovered/Not Resolved]
  - Leukocytosis [Unknown]

NARRATIVE: CASE EVENT DATE: 201306
